FAERS Safety Report 6381370-4 (Version None)
Quarter: 2009Q3

REPORT INFORMATION
  Report Type: 
  Country: None (occurrence: None)
  Receive Date: 20090929
  Receipt Date: 20090909
  Transmission Date: 20100115
  Serious: Yes (Other)
  Sender: FDA-Public Use
  Company Number: DE-GENENTECH-272664

PATIENT
  Sex: Female

DRUGS (5)
  1. BEVACIZUMAB [Suspect]
     Indication: OVARIAN EPITHELIAL CANCER
     Dosage: 576 MG, UNK
     Route: 042
     Dates: start: 20081002
  2. PACLITAXEL [Suspect]
     Indication: OVARIAN EPITHELIAL CANCER
     Dosage: 175 UNK, UNK
     Route: 042
     Dates: start: 20081002
  3. PACLITAXEL [Suspect]
     Dosage: 322 MG, UNK
  4. CARBOPLATIN [Suspect]
     Indication: OVARIAN EPITHELIAL CANCER
     Dosage: 5 UNK, UNK
     Route: 042
     Dates: start: 20081002
  5. CARBOPLATIN [Suspect]
     Dosage: 425 MG, UNK

REACTIONS (3)
  - ANAEMIA [None]
  - LEUKOPENIA [None]
  - UROGENITAL FISTULA [None]
